FAERS Safety Report 9782415 (Version 1)
Quarter: 2013Q4

REPORT INFORMATION
  Report Type: Spontaneous
  Country: US (occurrence: US)
  Receive Date: 20131226
  Receipt Date: 20131226
  Transmission Date: 20140711
  Serious: No
  Sender: FDA-Public Use
  Company Number: US-JNJFOC-20131208337

PATIENT
  Sex: Female
  Weight: 74.84 kg

DRUGS (1)
  1. DURAGESIC [Suspect]
     Indication: BACK PAIN
     Route: 062
     Dates: start: 201309

REACTIONS (3)
  - Breakthrough pain [Not Recovered/Not Resolved]
  - Product packaging quantity issue [Unknown]
  - Inappropriate schedule of drug administration [Unknown]
